FAERS Safety Report 9911373 (Version 2)
Quarter: 2014Q1

REPORT INFORMATION
  Report Type: Spontaneous
  Country: AU (occurrence: AU)
  Receive Date: 20140219
  Receipt Date: 20140228
  Transmission Date: 20141002
  Serious: Yes (Hospitalization, Disabling, Other)
  Sender: FDA-Public Use
  Company Number: PHHY2014AU019096

PATIENT
  Age: 75 Year
  Sex: Female

DRUGS (6)
  1. ACLASTA [Suspect]
     Indication: OSTEOPOROSIS
     Dosage: 5 MG, UNK
     Route: 042
     Dates: start: 20140117, end: 20140117
  2. FISH OIL [Concomitant]
     Dosage: 1000 MG, QD
     Route: 048
  3. VIT B12 [Concomitant]
     Dosage: 1 ML, UNK
  4. CALCIUM+VIT D                      /05099901/ [Concomitant]
     Dosage: 600MG/500 IU DAILY
     Route: 048
  5. RABEPRAZOL [Concomitant]
     Dosage: 20 MG, QD
     Route: 048
  6. OESTRIOL [Concomitant]
     Dosage: UNK UKN, UNK
     Route: 067

REACTIONS (16)
  - Listless [Recovered/Resolved]
  - Nausea [Recovering/Resolving]
  - Dyspnoea [Recovered/Resolved]
  - Loss of consciousness [Recovered/Resolved]
  - Dysstasia [Recovered/Resolved]
  - Malaise [Recovered/Resolved]
  - Chills [Recovered/Resolved]
  - Pyrexia [Recovered/Resolved]
  - Headache [Recovered/Resolved]
  - Fatigue [Recovered/Resolved]
  - Full blood count decreased [Unknown]
  - Local swelling [Recovered/Resolved]
  - Hyperhidrosis [Recovered/Resolved]
  - Musculoskeletal pain [Recovered/Resolved]
  - Pain [Recovered/Resolved]
  - Pollakiuria [Recovered/Resolved]
